FAERS Safety Report 21658057 (Version 2)
Quarter: 2022Q4

REPORT INFORMATION
  Report Type: Spontaneous
  Country: US (occurrence: US)
  Receive Date: 20221129
  Receipt Date: 20221129
  Transmission Date: 20230112
  Serious: Yes (Death, Hospitalization)
  Sender: FDA-Public Use
  Company Number: US-PFIZER INC-PV202200110459

PATIENT
  Age: 31 Year
  Sex: Male

DRUGS (4)
  1. FUROSEMIDE [Suspect]
     Active Substance: FUROSEMIDE
     Indication: Cardiogenic shock
     Dosage: HIGH DOSE
  2. FUROSEMIDE [Suspect]
     Active Substance: FUROSEMIDE
     Indication: Cardiac failure
  3. TOLVAPTAN [Suspect]
     Active Substance: TOLVAPTAN
     Indication: Cardiac failure
     Dosage: 30 MG/D, 4 DOSES
  4. TOLVAPTAN [Suspect]
     Active Substance: TOLVAPTAN
     Indication: Cardiogenic shock
     Dosage: 60 MG ON THE DAY OF TRANSFER

REACTIONS (1)
  - Blood sodium increased [Fatal]
